FAERS Safety Report 15294556 (Version 1)
Quarter: 2018Q3

REPORT INFORMATION
  Report Type: Spontaneous
  Country: US (occurrence: US)
  Receive Date: 20180807
  Receipt Date: 20180807
  Transmission Date: 20181010
  Serious: Yes (Hospitalization, Other)
  Sender: FDA-Public Use
  Company Number: None

PATIENT
  Age: 59 Year
  Sex: Male
  Weight: 78.75 kg

DRUGS (6)
  1. FENTANYL TRANSDERMAL SYSTEM [Suspect]
     Active Substance: FENTANYL
     Indication: OSTEITIS DEFORMANS
     Dosage: ?          QUANTITY:1 PATCH(ES);OTHER FREQUENCY:EVERY OTHER DAY;?
     Route: 062
     Dates: start: 20180708, end: 20180711
  2. FENTANYL TRANSDERMAL SYSTEM [Suspect]
     Active Substance: FENTANYL
     Indication: SPINAL COLUMN STENOSIS
     Dosage: ?          QUANTITY:1 PATCH(ES);OTHER FREQUENCY:EVERY OTHER DAY;?
     Route: 062
     Dates: start: 20180708, end: 20180711
  3. ALLERGY MEDS [Concomitant]
  4. MULTIVITAMIN [Concomitant]
     Active Substance: VITAMINS
  5. FENTANYL TRANSDERMAL SYSTEM [Suspect]
     Active Substance: FENTANYL
     Indication: PAIN
     Dosage: ?          QUANTITY:1 PATCH(ES);OTHER FREQUENCY:EVERY OTHER DAY;?
     Route: 062
     Dates: start: 20180708, end: 20180711
  6. FISH OIL [Concomitant]
     Active Substance: FISH OIL

REACTIONS (6)
  - Drug ineffective [None]
  - Product adhesion issue [None]
  - Product substitution issue [None]
  - Inadequate analgesia [None]
  - Victim of crime [None]
  - Incorrect dose administered [None]

NARRATIVE: CASE EVENT DATE: 20180711
